FAERS Safety Report 4304276-0 (Version None)
Quarter: 2004Q1

REPORT INFORMATION
  Report Type: 
  Country: None (occurrence: None)
  Receive Date: 20040224
  Receipt Date: 20040210
  Transmission Date: 20041129
  Serious: Yes (Death, Other)
  Sender: FDA-Public Use
  Company Number: BIVUS040002

PATIENT
  Age: 55 Year
  Sex: Male

DRUGS (11)
  1. ANGIOMAX [Suspect]
     Indication: ANTICOAGULANT THERAPY
     Dosage: SEE IMAGE
     Route: 042
     Dates: start: 20040114, end: 20040114
  2. ANGIOMAX [Suspect]
     Indication: ANTICOAGULANT THERAPY
     Dosage: SEE IMAGE
     Route: 042
     Dates: start: 20040114, end: 20040114
  3. ANGIOMAX [Suspect]
     Indication: ANTICOAGULANT THERAPY
     Dosage: SEE IMAGE
     Route: 042
     Dates: start: 20040114, end: 20040114
  4. ANGIOMAX [Suspect]
     Indication: ANTICOAGULANT THERAPY
     Dosage: SEE IMAGE
     Route: 042
     Dates: start: 20040114, end: 20040114
  5. ANGIOMAX [Suspect]
     Indication: ANTICOAGULANT THERAPY
     Dosage: SEE IMAGE
     Route: 042
     Dates: start: 20040114, end: 20040114
  6. ANGIOMAX [Suspect]
     Indication: ANTICOAGULANT THERAPY
     Dosage: SEE IMAGE
     Route: 042
     Dates: start: 20040114, end: 20040114
  7. APROTININ (APROTININ) [Concomitant]
  8. PRIMACOR [Concomitant]
  9. LEVOPHED [Concomitant]
  10. VASOPRESSIN (VASOPRESSIN, INJECTION) [Concomitant]
  11. DOPAMINE (DOPAMINDE) [Concomitant]

REACTIONS (5)
  - ACTIVATED PARTIAL THROMBOPLASTIN TIME PROLONGED [None]
  - HAEMORRHAGE [None]
  - IMPLANT SITE REACTION [None]
  - PROTHROMBIN LEVEL INCREASED [None]
  - THROMBOSIS [None]
